FAERS Safety Report 15007817 (Version 5)
Quarter: 2018Q3

REPORT INFORMATION
  Report Type: Spontaneous
  Country: US (occurrence: US)
  Receive Date: 20180613
  Receipt Date: 20180815
  Transmission Date: 20181010
  Serious: No
  Sender: FDA-Public Use
  Company Number: US-VIFOR (INTERNATIONAL) INC.-VIT-2018-05557

PATIENT
  Age: 78 Year
  Sex: Female

DRUGS (26)
  1. BETAMETHASONE~~CLOTRIMAZOLE [Concomitant]
  2. GABAPENTIN. [Concomitant]
     Active Substance: GABAPENTIN
  3. TORASEMIDE [Concomitant]
     Active Substance: TORSEMIDE
  4. VELTASSA [Suspect]
     Active Substance: PATIROMER
     Dates: start: 20180517
  5. AMOXICILLIN. [Concomitant]
     Active Substance: AMOXICILLIN
  6. CARVEDILOL. [Concomitant]
     Active Substance: CARVEDILOL
  7. COLACE [Concomitant]
     Active Substance: DOCUSATE SODIUM
  8. IRBESARTAN. [Concomitant]
     Active Substance: IRBESARTAN
  9. TRAMADOL HYDROCHLORIDE. [Concomitant]
     Active Substance: TRAMADOL HYDROCHLORIDE
  10. VELTASSA [Suspect]
     Active Substance: PATIROMER
     Indication: HYPERKALAEMIA
     Route: 048
     Dates: start: 20180601
  11. ESCITALOPRAM OXALATE. [Concomitant]
     Active Substance: ESCITALOPRAM OXALATE
  12. NYSTATIN. [Concomitant]
     Active Substance: NYSTATIN
  13. CENTRUM SILVER 50+WOMEN [Concomitant]
  14. ATORVASTATIN CALCIUM. [Concomitant]
     Active Substance: ATORVASTATIN CALCIUM
  15. HUMALOG KWIKPEN [Concomitant]
     Active Substance: INSULIN LISPRO
  16. COLECALCIFEROL [Concomitant]
     Active Substance: CHOLECALCIFEROL
  17. DOCUSATE SODIUM~~SENNA ALEXANDRINA [Concomitant]
  18. SPIRIVA [Concomitant]
     Active Substance: TIOTROPIUM BROMIDE MONOHYDRATE
  19. MIRALAX [Concomitant]
     Active Substance: POLYETHYLENE GLYCOL 3350
  20. ASCORBIC ACID~~PYRIDOXINE HYDROCHLORIDE~~BIOTIN~~FOLIC ACID~~CYANOCOBALAMIN~~RIBOFLAVIN~~NICOTINAMID [Concomitant]
  21. LANTUS SOLOSTAR [Concomitant]
     Active Substance: INSULIN GLARGINE
  22. HYDRALAZINE HYDROCHLORIDE. [Concomitant]
     Active Substance: HYDRALAZINE HYDROCHLORIDE
  23. ACETYLSALICYLIC ACID [Concomitant]
     Active Substance: ASPIRIN
  24. FERROUS SULFATE. [Concomitant]
     Active Substance: FERROUS SULFATE
  25. PROAIR HFA [Concomitant]
     Active Substance: ALBUTEROL SULFATE
  26. ANORO ELLIPTA [Concomitant]
     Active Substance: UMECLIDINIUM BROMIDE\VILANTEROL TRIFENATATE

REACTIONS (3)
  - Gastric disorder [Unknown]
  - Diarrhoea [Recovered/Resolved]
  - Constipation [Recovered/Resolved]

NARRATIVE: CASE EVENT DATE: 20180614
